FAERS Safety Report 6060245-4 (Version None)
Quarter: 2009Q1

REPORT INFORMATION
  Report Type: 
  Country: None (occurrence: None)
  Receive Date: 20090129
  Receipt Date: 20090122
  Transmission Date: 20090719
  Serious: Yes (Death, Hospitalization)
  Sender: FDA-Public Use
  Company Number: 09P-062-0499376-00

PATIENT

DRUGS (2)
  1. SYNAGIS [Suspect]
     Indication: ANTIVIRAL PROPHYLAXIS
     Dosage: SUBCUTANEOUS
     Route: 058
  2. SYNAGIS [Suspect]
     Indication: IMMUNISATION
     Dosage: SUBCUTANEOUS
     Route: 058

REACTIONS (1)
  - RESPIRATORY SYNCYTIAL VIRUS BRONCHIOLITIS [None]
